FAERS Safety Report 5336617-X (Version None)
Quarter: 2007Q2

REPORT INFORMATION
  Report Type: 
  Country: None (occurrence: None)
  Receive Date: 20070524
  Receipt Date: 20070511
  Transmission Date: 20071010
  Serious: Yes (Hospitalization)
  Sender: FDA-Public Use
  Company Number: MEDI-0005745

PATIENT
  Age: 1 Month
  Sex: Male
  Weight: 4.96 kg

DRUGS (1)
  1. SYNAGIS [Suspect]
     Indication: ANTIVIRAL PROPHYLAXIS
     Dosage: 75 MG, INTRAMUSCULAR
     Route: 030
     Dates: start: 20070416, end: 20070416

REACTIONS (2)
  - ERYTHEMA MULTIFORME [None]
  - PYREXIA [None]
